FAERS Safety Report 9913088 (Version 1)
Quarter: 2014Q1

REPORT INFORMATION
  Report Type: Spontaneous
  Country: US (occurrence: None)
  Receive Date: 20140218
  Receipt Date: 20140218
  Transmission Date: 20141002
  Serious: Yes (Hospitalization)
  Sender: FDA-Public Use
  Company Number: None

PATIENT
  Age: 55 Year
  Sex: Female
  Weight: 99.79 kg

DRUGS (1)
  1. HYDROCODONE, ACETAMINOPHEN [Suspect]

REACTIONS (4)
  - Skin disorder [None]
  - Dry skin [None]
  - Scar [None]
  - Eczema [None]
